FAERS Safety Report 14134379 (Version 9)
Quarter: 2018Q1

REPORT INFORMATION
  Report Type: Report from Study
  Country: US (occurrence: US)
  Receive Date: 20171026
  Receipt Date: 20180319
  Transmission Date: 20180508
  Serious: Yes (Life-Threatening, Hospitalization, Other)
  Sender: FDA-Public Use
  Company Number: US-TESARO, INC-US-2017TSO02956

PATIENT

DRUGS (14)
  1. VANCOMYCIN [Concomitant]
     Active Substance: VANCOMYCIN
     Indication: CLOSTRIDIUM DIFFICILE INFECTION
     Dosage: UNK
  2. ZEJULA [Suspect]
     Active Substance: NIRAPARIB
     Dosage: 100 MG, QD
     Route: 048
     Dates: start: 20180112
  3. NITROFURANTOIN MACROCRYSTALS [Concomitant]
     Active Substance: NITROFURANTOIN
     Indication: PRODUCT USED FOR UNKNOWN INDICATION
     Dosage: UNK
  4. BIOTENE                            /03475601/ [Concomitant]
     Indication: DRY MOUTH
     Dosage: UNK
  5. CEFUROXIME. [Concomitant]
     Active Substance: CEFUROXIME
     Indication: PRODUCT USED FOR UNKNOWN INDICATION
     Dosage: UNK
  6. POTASSIUM CHLORIDE. [Concomitant]
     Active Substance: POTASSIUM CHLORIDE
     Indication: PRODUCT USED FOR UNKNOWN INDICATION
     Dosage: UNK
  7. ZEJULA [Suspect]
     Active Substance: NIRAPARIB
     Dosage: 100 MG, QD
     Route: 048
  8. AMOXICILLIN AND CLAVULANATE POTASSIUM [Concomitant]
     Active Substance: AMOXICILLIN\CLAVULANATE POTASSIUM
     Indication: PRODUCT USED FOR UNKNOWN INDICATION
     Dosage: UNK
  9. MIRALAX [Concomitant]
     Active Substance: POLYETHYLENE GLYCOL 3350
     Indication: PRODUCT USED FOR UNKNOWN INDICATION
     Dosage: UNK
  10. ZEJULA [Suspect]
     Active Substance: NIRAPARIB
     Indication: OVARIAN CANCER
     Dosage: 300 MG, QD
     Route: 048
     Dates: start: 20170908, end: 20170929
  11. ZOFRAN [Concomitant]
     Active Substance: ONDANSETRON HYDROCHLORIDE
     Indication: NAUSEA
     Dosage: UNK
  12. ZEJULA [Suspect]
     Active Substance: NIRAPARIB
     Dosage: 200 MG, QD
     Route: 048
     Dates: start: 20171018, end: 20171108
  13. PROBIOTIC                          /06395501/ [Concomitant]
     Active Substance: BIFIDOBACTERIUM ANIMALIS LACTIS
     Indication: PRODUCT USED FOR UNKNOWN INDICATION
     Dosage: UNK
  14. MIDODRINE [Concomitant]
     Active Substance: MIDODRINE
     Indication: PRODUCT USED FOR UNKNOWN INDICATION
     Dosage: UNK

REACTIONS (27)
  - Blood culture positive [Unknown]
  - Infection [Unknown]
  - Pyrexia [Unknown]
  - Urinary tract infection [Unknown]
  - Neutrophil count decreased [Unknown]
  - Drug dose omission [Unknown]
  - Ureteric obstruction [Unknown]
  - Platelet count decreased [Unknown]
  - Constipation [Unknown]
  - Dyspnoea [Unknown]
  - Abdominal distension [Unknown]
  - Clostridium difficile colitis [Not Recovered/Not Resolved]
  - Muscle spasms [Unknown]
  - Insomnia [Unknown]
  - Haemoglobin decreased [Unknown]
  - Nausea [Not Recovered/Not Resolved]
  - White blood cell count decreased [Unknown]
  - Lymphoedema [Unknown]
  - Cystitis [Not Recovered/Not Resolved]
  - Dysuria [Unknown]
  - Back pain [Unknown]
  - Dry mouth [Not Recovered/Not Resolved]
  - Urethral obstruction [Unknown]
  - Diarrhoea [Recovered/Resolved]
  - Sciatica [Unknown]
  - Fatigue [Unknown]
  - Energy increased [Unknown]

NARRATIVE: CASE EVENT DATE: 201709
